FAERS Safety Report 12274536 (Version 1)
Quarter: 2016Q2

REPORT INFORMATION
  Report Type: Spontaneous
  Country: US (occurrence: US)
  Receive Date: 20160415
  Receipt Date: 20160415
  Transmission Date: 20160815
  Serious: No
  Sender: FDA-Public Use
  Company Number: US-ALLERGAN-1505743US

PATIENT
  Age: 52 Year
  Sex: Female

DRUGS (3)
  1. VITAMINS [Concomitant]
     Active Substance: VITAMINS
  2. LUMIGAN [Suspect]
     Active Substance: BIMATOPROST
     Indication: GLAUCOMA
     Dosage: 2 GTT, QHS
     Route: 047
     Dates: start: 201404
  3. ALAWAY [Concomitant]
     Active Substance: KETOTIFEN FUMARATE
     Indication: HYPERSENSITIVITY

REACTIONS (6)
  - Rhinorrhoea [Unknown]
  - Eyelid oedema [Unknown]
  - Nasal congestion [Unknown]
  - Lacrimation increased [Unknown]
  - Hair growth abnormal [Unknown]
  - Growth of eyelashes [Unknown]
